FAERS Safety Report 9092844 (Version 1)
Quarter: 2013Q1

REPORT INFORMATION
  Report Type: Spontaneous
  Country: US (occurrence: None)
  Receive Date: 20130213
  Receipt Date: 20130213
  Transmission Date: 20140127
  Serious: Yes (Disabling)
  Sender: FDA-Public Use
  Company Number: None

PATIENT
  Age: 81 Year
  Sex: Male
  Weight: 63.5 kg

DRUGS (1)
  1. LEVAQUIN [Suspect]

REACTIONS (9)
  - Tendon rupture [None]
  - Muscle atrophy [None]
  - Hypoaesthesia [None]
  - Pain in extremity [None]
  - Lung disorder [None]
  - Dyspnoea [None]
  - Condition aggravated [None]
  - Headache [None]
  - Asthenia [None]
